FAERS Safety Report 9492263 (Version 1)
Quarter: 2013Q3

REPORT INFORMATION
  Report Type: Spontaneous
  Country: US (occurrence: US)
  Receive Date: 20130830
  Receipt Date: 20130830
  Transmission Date: 20140515
  Serious: No
  Sender: FDA-Public Use
  Company Number: US-009507513-1308USA014399

PATIENT
  Sex: Female

DRUGS (2)
  1. ZEGERID [Suspect]
     Indication: PRODUCT USED FOR UNKNOWN INDICATION
     Dosage: UNK, BID
     Route: 048
     Dates: start: 2009
  2. ZEGERID [Suspect]
     Indication: MEDICAL OBSERVATION

REACTIONS (3)
  - Visual impairment [Not Recovered/Not Resolved]
  - Overdose [Unknown]
  - Incorrect drug administration duration [Unknown]
